FAERS Safety Report 8461289-5 (Version None)
Quarter: 2012Q2

REPORT INFORMATION
  Report Type: 
  Country: None (occurrence: None)
  Receive Date: 20120625
  Receipt Date: 20120613
  Transmission Date: 20120825
  Serious: No
  Sender: FDA-Public Use
  Company Number: FR-JNJFOC-20120521022

PATIENT
  Sex: Female
  Weight: 56 kg

DRUGS (5)
  1. DURAGESIC-100 [Suspect]
     Route: 062
     Dates: start: 20120508
  2. DURAGESIC-100 [Suspect]
     Route: 062
     Dates: start: 20120505
  3. DURAGESIC-100 [Suspect]
     Route: 062
     Dates: start: 20120510, end: 20120512
  4. DURAGESIC-100 [Suspect]
     Route: 062
     Dates: start: 20120501
  5. DURAGESIC-100 [Suspect]
     Indication: SCIATICA
     Route: 062
     Dates: start: 20120513

REACTIONS (5)
  - DRUG INEFFECTIVE [None]
  - DRUG ADMINISTERED AT INAPPROPRIATE SITE [None]
  - PAIN [None]
  - WITHDRAWAL SYNDROME [None]
  - HOT FLUSH [None]
